FAERS Safety Report 6833784-3 (Version None)
Quarter: 2010Q3

REPORT INFORMATION
  Report Type: 
  Country: None (occurrence: None)
  Receive Date: 20100712
  Receipt Date: 20070402
  Transmission Date: 20110219
  Serious: No
  Sender: FDA-Public Use
  Company Number: US-PFIZER INC-2007027397

PATIENT
  Sex: Female
  Weight: 68.95 kg

DRUGS (5)
  1. CHANTIX [Suspect]
     Indication: SMOKING CESSATION THERAPY
     Dates: start: 20061101
  2. VITAMINS [Concomitant]
  3. OXYCONTIN [Concomitant]
  4. NAPROXEN [Concomitant]
     Indication: HEADACHE
  5. AMITRIPTYLINE HYDROCHLORIDE [Concomitant]
     Indication: SLEEP DISORDER

REACTIONS (3)
  - DYSPNOEA [None]
  - NAUSEA [None]
  - WEIGHT INCREASED [None]
